FAERS Safety Report 6815218-8 (Version None)
Quarter: 2010Q3

REPORT INFORMATION
  Report Type: 
  Country: None (occurrence: None)
  Receive Date: 20100701
  Receipt Date: 20100701
  Transmission Date: 20110219
  Serious: Yes (Hospitalization)
  Sender: FDA-Public Use
  Company Number: None

PATIENT
  Age: 34 Year
  Sex: Male
  Weight: 81.3 kg

DRUGS (1)
  1. ACETAMINOPHEN [Suspect]
     Indication: PAIN
     Dosage: 500 MG PRN PO
     Route: 048
     Dates: end: 20100413

REACTIONS (7)
  - ABDOMINAL PAIN [None]
  - ALCOHOL USE [None]
  - DRUG TOXICITY [None]
  - HEPATIC ENZYME INCREASED [None]
  - HEPATOCELLULAR INJURY [None]
  - HYPOPHAGIA [None]
  - INCORRECT ROUTE OF DRUG ADMINISTRATION [None]
